FAERS Safety Report 4680457-1 (Version None)
Quarter: 2005Q2

REPORT INFORMATION
  Report Type: 
  Country: None (occurrence: None)
  Receive Date: 20050602
  Receipt Date: 20050523
  Transmission Date: 20051028
  Serious: Yes (Life-Threatening, Hospitalization)
  Sender: FDA-Public Use
  Company Number: US-MERCK-0505USA02662

PATIENT
  Age: 71 Year
  Sex: Female

DRUGS (6)
  1. ZOCOR [Suspect]
     Indication: BLOOD CHOLESTEROL INCREASED
     Route: 048
     Dates: start: 20040101
  2. AVAPRO [Concomitant]
     Route: 065
  3. SYNTHROID [Concomitant]
     Route: 065
  4. LOPRESSOR [Concomitant]
     Route: 065
  5. NORVASC [Concomitant]
     Route: 065
  6. QUININE SULFATE [Concomitant]
     Route: 065

REACTIONS (1)
  - HEART RATE IRREGULAR [None]
